FAERS Safety Report 8901891 (Version 1)
Quarter: 2012Q4

REPORT INFORMATION
  Report Type: Spontaneous
  Country: US (occurrence: None)
  Receive Date: 20121109
  Receipt Date: 20121109
  Transmission Date: 20130627
  Serious: No
  Sender: FDA-Public Use
  Company Number: None

PATIENT
  Age: 51 Year
  Sex: Female

DRUGS (1)
  1. SIMPONI [Suspect]
     Indication: RA
     Route: 058
     Dates: start: 20120824, end: 20121015

REACTIONS (13)
  - Nephrolithiasis [None]
  - Stomatitis [None]
  - Nasal ulcer [None]
  - Skin ulcer [None]
  - Sinus headache [None]
  - Headache [None]
  - Myalgia [None]
  - Back pain [None]
  - Hyperhidrosis [None]
  - Lethargy [None]
  - Burning sensation [None]
  - Fibromyalgia [None]
  - Confusional state [None]
